FAERS Safety Report 10669066 (Version 5)
Quarter: 2015Q1

REPORT INFORMATION
  Report Type: Report from Study
  Country: US (occurrence: US)
  Receive Date: 20141222
  Receipt Date: 20150217
  Transmission Date: 20150720
  Serious: Yes (Hospitalization)
  Sender: FDA-Public Use
  Company Number: US-GLAXOSMITHKLINE-US2014037055

PATIENT
  Age: 59 Year
  Sex: Female
  Weight: 69.4 kg

DRUGS (5)
  1. DABRAFENIB CAPSULE [Suspect]
     Active Substance: DABRAFENIB
     Indication: COLORECTAL CANCER
     Dosage: 150 MG, BID
     Route: 048
     Dates: start: 20140207
  2. PANITUMUMAB SOLUTION FOR INFUSION [Suspect]
     Active Substance: PANITUMUMAB
     Indication: COLORECTAL CANCER
     Dosage: UNK, CYC
     Route: 042
     Dates: start: 20140207
  3. DABRAFENIB CAPSULE [Suspect]
     Active Substance: DABRAFENIB
     Dosage: 100 MG, BID
     Route: 048
     Dates: start: 20140618
  4. TRAMETINIB TABLET [Suspect]
     Active Substance: TRAMETINIB
     Dosage: 1 MG, QD
     Dates: start: 20141105
  5. TRAMETINIB TABLET [Suspect]
     Active Substance: TRAMETINIB
     Indication: COLORECTAL CANCER
     Dosage: 2 MG, QD
     Route: 048
     Dates: start: 20140207

REACTIONS (2)
  - Fatigue [Recovering/Resolving]
  - Dehydration [Recovering/Resolving]

NARRATIVE: CASE EVENT DATE: 20141212
